FAERS Safety Report 5462466-8 (Version None)
Quarter: 2007Q3

REPORT INFORMATION
  Report Type: 
  Country: None (occurrence: None)
  Receive Date: 20070920
  Receipt Date: 20070909
  Transmission Date: 20080115
  Serious: Yes (Life-Threatening, Disabling, Other)
  Sender: FDA-Public Use
  Company Number: DE-BAYER-200710486BBE

PATIENT
  Age: 2 Year
  Sex: Male

DRUGS (14)
  1. HELIXATE NEXGEN [Suspect]
     Indication: FACTOR VIII DEFICIENCY
     Route: 042
     Dates: start: 20061023, end: 20061023
  2. HELIXATE NEXGEN [Suspect]
     Route: 042
     Dates: start: 20070108, end: 20070110
  3. HELIXATE NEXGEN [Suspect]
     Route: 042
     Dates: start: 20070216, end: 20070630
  4. HELIXATE NEXGEN [Suspect]
     Route: 042
     Dates: start: 20070511, end: 20070630
  5. HELIXATE NEXGEN [Suspect]
     Route: 042
     Dates: start: 20061023, end: 20070420
  6. HELIXATE NEXGEN [Suspect]
     Route: 042
     Dates: start: 20070116, end: 20070601
  7. HELIXATE NEXGEN [Suspect]
     Route: 042
     Dates: start: 20070322, end: 20070615
  8. HELIXATE NEXGEN [Suspect]
     Route: 042
     Dates: start: 20061023
  9. HELIXATE NEXGEN [Suspect]
     Route: 042
     Dates: start: 20070711, end: 20070711
  10. HELIXATE NEXGEN [Suspect]
     Route: 042
     Dates: start: 20070713, end: 20070713
  11. HELIXATE NEXGEN [Suspect]
     Route: 042
     Dates: start: 20070713
  12. HELIXATE NEXGEN [Suspect]
     Route: 042
     Dates: start: 20070108, end: 20070110
  13. HELIXATE NEXGEN [Suspect]
     Route: 042
     Dates: start: 20070216, end: 20070630
  14. HELIXATE NEXGEN [Suspect]
     Route: 042
     Dates: start: 20070216, end: 20070630

REACTIONS (1)
  - FACTOR VIII INHIBITION [None]
